FAERS Safety Report 4462312-5 (Version None)
Quarter: 2004Q3

REPORT INFORMATION
  Report Type: 
  Country: None (occurrence: None)
  Receive Date: 20040924
  Receipt Date: 20040910
  Transmission Date: 20050211
  Serious: Yes (Other)
  Sender: FDA-Public Use
  Company Number: 206148

PATIENT
  Age: 6 Year
  Sex: Female
  Weight: 18.3 kg

DRUGS (6)
  1. NUTROPIN AQ [Suspect]
     Indication: TURNER'S SYNDROME
     Dosage: SEE IMAGE
     Route: 058
     Dates: start: 20030217, end: 20040412
  2. NUTROPIN AQ [Suspect]
     Indication: TURNER'S SYNDROME
     Dosage: SEE IMAGE
     Route: 058
     Dates: start: 20040413, end: 20040417
  3. BUSPAR [Concomitant]
  4. RISPERDAL [Concomitant]
  5. LUVOX [Concomitant]
  6. ZYRTEC [Concomitant]

REACTIONS (4)
  - BRAIN OEDEMA [None]
  - DIPLOPIA [None]
  - STRABISMUS [None]
  - VITH NERVE PARALYSIS [None]
